FAERS Safety Report 13934347 (Version 1)
Quarter: 2017Q3

REPORT INFORMATION
  Report Type: Spontaneous
  Country: GB (occurrence: GB)
  Receive Date: 20170905
  Receipt Date: 20170905
  Transmission Date: 20171127
  Serious: Yes (Hospitalization, Other)
  Sender: FDA-Public Use
  Company Number: GB-ACCORD-057910

PATIENT
  Age: 84 Year
  Sex: Male

DRUGS (8)
  1. ATENOLOL/ATENOLOL HYDROCHLORIDE [Concomitant]
     Active Substance: ATENOLOL HYDROCHLORIDE
  2. CARBAMAZEPINE. [Concomitant]
     Active Substance: CARBAMAZEPINE
     Indication: PAIN
     Dosage: TOOK 2 DAYS BEFORE COMING INTO HOSPITAL. HELD.
     Dates: start: 20170503
  3. OMEPRAZOLE. [Suspect]
     Active Substance: OMEPRAZOLE
     Indication: PRODUCT USED FOR UNKNOWN INDICATION
  4. ASPIRIN. [Concomitant]
     Active Substance: ASPIRIN
  5. ATORVASTATIN [Concomitant]
     Active Substance: ATORVASTATIN
     Dosage: AT NIGHT.
  6. PERINDOPRIL [Concomitant]
     Active Substance: PERINDOPRIL
     Dosage: EACH MORNING BEFORE FOOD. 2MG+4MG.
  7. TRAMADOL/TRAMADOL HYDROCHLORIDE [Suspect]
     Active Substance: TRAMADOL HYDROCHLORIDE
     Indication: PRODUCT USED FOR UNKNOWN INDICATION
     Dosage: 50-100MG 4 TIMES A DAY.
     Dates: start: 20170504
  8. OTOMIZE [Concomitant]
     Active Substance: DEXAMETHASONE\NEOMYCIN SULFATE
     Dosage: IN THE RIGHT EAR. PATIENT STOPPED USING APPROXIMATELY A WEEK AGO.
     Dates: end: 201708

REACTIONS (1)
  - Hyponatraemia [Recovered/Resolved]
